FAERS Safety Report 4357678-0 (Version None)
Quarter: 2004Q2

REPORT INFORMATION
  Report Type: 
  Country: None (occurrence: None)
  Receive Date: 20040512
  Receipt Date: 20040512
  Transmission Date: 20050107
  Serious: Yes (Disabling)
  Sender: FDA-Public Use
  Company Number: None

PATIENT
  Age: 37 Year
  Sex: Male
  Weight: 79.3795 kg

DRUGS (1)
  1. PAXIL [Suspect]
     Indication: PANIC DISORDER
     Dosage: 20 MG DAILY ORAL
     Route: 048
     Dates: start: 19980601, end: 20040511

REACTIONS (10)
  - AMNESIA [None]
  - ANGER [None]
  - DRUG EFFECT DECREASED [None]
  - DRUG WITHDRAWAL SYNDROME [None]
  - EMOTIONAL DISORDER [None]
  - HYPERACUSIS [None]
  - IMPAIRED WORK ABILITY [None]
  - PHOTOPHOBIA [None]
  - SEXUAL DYSFUNCTION [None]
  - WEIGHT INCREASED [None]
